FAERS Safety Report 11417663 (Version 4)
Quarter: 2015Q3

REPORT INFORMATION
  Report Type: Spontaneous
  Country: US (occurrence: US)
  Receive Date: 20150825
  Receipt Date: 20150930
  Transmission Date: 20151125
  Serious: No
  Sender: FDA-Public Use
  Company Number: PHEH2015US015986

PATIENT
  Age: 51 Year
  Sex: Female
  Weight: 53.7 kg

DRUGS (2)
  1. VIVELLE DOT [Suspect]
     Active Substance: ESTRADIOL
     Indication: ARTIFICIAL MENOPAUSE
     Dosage: 0.05 MG, UNK (CHANGE PATCHES 2X WEEK SUN/WEDNESDAY)
     Route: 062
     Dates: start: 20150301
  2. VIVELLE DOT [Suspect]
     Active Substance: ESTRADIOL
     Indication: OSTEOPOROSIS

REACTIONS (10)
  - Dermatitis contact [Recovered/Resolved]
  - Frustration [Unknown]
  - Drug ineffective [Unknown]
  - Application site vesicles [Unknown]
  - Application site pruritus [Recovered/Resolved]
  - Burns second degree [Unknown]
  - Scar [Unknown]
  - Hot flush [Recovering/Resolving]
  - Application site scab [Unknown]
  - Application site rash [Unknown]

NARRATIVE: CASE EVENT DATE: 20150301
